FAERS Safety Report 14980080 (Version 1)
Quarter: 2018Q2

REPORT INFORMATION
  Report Type: Spontaneous
  Country: FR (occurrence: FR)
  Receive Date: 20180606
  Receipt Date: 20180606
  Transmission Date: 20180711
  Serious: Yes (Other)
  Sender: FDA-Public Use
  Company Number: FR-TEVA-2018-FR-900965

PATIENT
  Sex: Female

DRUGS (1)
  1. OXALIPLATINE TEVA 5 MG/ML, SOLUTION ? DILUER POUR PERFUSION [Suspect]
     Active Substance: OXALIPLATIN
     Indication: NEOPLASM MALIGNANT
     Dosage: NON RENSEIGN?E
     Route: 042
     Dates: start: 20171010, end: 20171010

REACTIONS (1)
  - Movement disorder [Recovered/Resolved]

NARRATIVE: CASE EVENT DATE: 20171010
